FAERS Safety Report 17873481 (Version 1)
Quarter: 2020Q2

REPORT INFORMATION
  Report Type: Spontaneous
  Country: US (occurrence: US)
  Receive Date: 20200609
  Receipt Date: 20200609
  Transmission Date: 20200714
  Serious: Yes (Life-Threatening, Hospitalization, Other)
  Sender: FDA-Public Use
  Company Number: US-SUN PHARMACEUTICAL INDUSTRIES LTD-2019R1-206637

PATIENT
  Age: 48 Year
  Sex: Female

DRUGS (1)
  1. LOPERAMIDE [Suspect]
     Active Substance: LOPERAMIDE
     Indication: DIARRHOEA
     Dosage: DAILY 6-8 TABLETS
     Route: 065

REACTIONS (8)
  - Toxicity to various agents [Unknown]
  - Electrocardiogram QRS complex prolonged [Recovered/Resolved]
  - Drug abuse [Unknown]
  - Bundle branch block right [Recovered/Resolved]
  - Electrocardiogram QT prolonged [Recovered/Resolved]
  - Electrocardiogram PR prolongation [Recovered/Resolved]
  - Atrioventricular block first degree [Recovered/Resolved]
  - Brugada syndrome [Recovered/Resolved]
